FAERS Safety Report 4533207-3 (Version None)
Quarter: 2005Q1

REPORT INFORMATION
  Report Type: 
  Country: None (occurrence: None)
  Receive Date: 20041206
  Receipt Date: 20041025
  Transmission Date: 20050727
  Serious: No
  Sender: FDA-Public Use
  Company Number: USA041082172

PATIENT
  Sex: Female

DRUGS (1)
  1. CYMBALTA [Suspect]
     Dosage: 60 MG/1 DAY

REACTIONS (2)
  - SOMNOLENCE [None]
  - STOMACH DISCOMFORT [None]
